FAERS Safety Report 17434225 (Version 1)
Quarter: 2020Q1

REPORT INFORMATION
  Report Type: Spontaneous
  Country: US (occurrence: US)
  Receive Date: 20200218
  Receipt Date: 20200218
  Transmission Date: 20200409
  Serious: No
  Sender: FDA-Public Use
  Company Number: None

PATIENT
  Age: 41 Year
  Sex: Male
  Weight: 58.5 kg

DRUGS (1)
  1. MAXIMUM STRENGTH MUCINEX FAST-MAX DAY AND NIGHT TIME COLD AND FLU (DOXYLAMINE) [Suspect]
     Active Substance: ACETAMINOPHEN\DEXTROMETHORPHAN HYDROBROMIDE\DOXYLAMINE SUCCINATE\GUAIFENESIN\PHENYLEPHRINE HYDROCHLORIDE
     Dosage: ?          QUANTITY:1 CAPSULE(S);?
     Route: 048
     Dates: start: 20200211, end: 20200214

REACTIONS (2)
  - Nasal dryness [None]
  - Dry throat [None]

NARRATIVE: CASE EVENT DATE: 20200213
